FAERS Safety Report 7526274-6 (Version None)
Quarter: 2011Q2

REPORT INFORMATION
  Report Type: 
  Country: None (occurrence: None)
  Receive Date: 20110603
  Receipt Date: 20110603
  Transmission Date: 20111010
  Serious: Yes (Life-Threatening)
  Sender: FDA-Public Use
  Company Number: None

PATIENT
  Age: 40 Year
  Sex: Male
  Weight: 100.2449 kg

DRUGS (1)
  1. ENBREL [Suspect]
     Dosage: 25 2 TIMES A WEEK IM
     Route: 030

REACTIONS (1)
  - CHRONIC LYMPHOCYTIC LEUKAEMIA [None]
